FAERS Safety Report 6252048-2 (Version None)
Quarter: 2009Q2

REPORT INFORMATION
  Report Type: 
  Country: None (occurrence: None)
  Receive Date: 20090630
  Receipt Date: 20090625
  Transmission Date: 20091009
  Serious: Yes (Hospitalization)
  Sender: FDA-Public Use
  Company Number: BE-ABBOTT-09P-013-0571737-00

PATIENT
  Sex: Male

DRUGS (7)
  1. KALETRA [Suspect]
     Indication: HIV INFECTION
     Dosage: 200MG/50MG TABS, 4 TABS/DAY
     Route: 048
     Dates: start: 20081027, end: 20090101
  2. KALETRA [Suspect]
     Dosage: 200MG/50MG TABS, 4 TABS/DAY
     Route: 048
     Dates: start: 20090206
  3. ACETAMINOPHEN [Suspect]
     Indication: DRUG USE FOR UNKNOWN INDICATION
  4. VIREAD [Concomitant]
     Indication: HIV INFECTION
     Dates: start: 20081027, end: 20090101
  5. VIREAD [Concomitant]
     Dates: start: 20090206
  6. EMTRIVA [Concomitant]
     Indication: HIV INFECTION
     Dates: start: 20081027, end: 20090101
  7. EMTRIVA [Concomitant]
     Dates: start: 20090206

REACTIONS (7)
  - ANOGENITAL WARTS [None]
  - DIARRHOEA HAEMORRHAGIC [None]
  - HAEMATEMESIS [None]
  - ORAL CANDIDIASIS [None]
  - OROPHARYNGEAL PAIN [None]
  - OVERDOSE [None]
  - PNEUMONIA [None]
